FAERS Safety Report 13049295 (Version 1)
Quarter: 2016Q4

REPORT INFORMATION
  Report Type: Spontaneous
  Country: US (occurrence: US)
  Receive Date: 20161221
  Receipt Date: 20161221
  Transmission Date: 20170207
  Serious: Yes (Other)
  Sender: FDA-Public Use
  Company Number: US-BAUSCH-BL-2016-031761

PATIENT
  Sex: Female
  Weight: 53.57 kg

DRUGS (2)
  1. ADVANCED EYE RELIEF/ REDNESS INSTANT RELIEF [Suspect]
     Active Substance: NAPHAZOLINE HYDROCHLORIDE\POLYETHYLENE GLYCOL 300
     Indication: EYE IRRITATION
     Route: 061
     Dates: start: 201611, end: 201611
  2. ADVANCED EYE RELIEF/ REDNESS INSTANT RELIEF [Suspect]
     Active Substance: NAPHAZOLINE HYDROCHLORIDE\POLYETHYLENE GLYCOL 300
     Indication: EYE PAIN

REACTIONS (1)
  - Blindness transient [Recovered/Resolved]

NARRATIVE: CASE EVENT DATE: 201611
